FAERS Safety Report 7108508-5 (Version None)
Quarter: 2010Q4

REPORT INFORMATION
  Report Type: 
  Country: None (occurrence: None)
  Receive Date: 20101117
  Receipt Date: 20100726
  Transmission Date: 20110411
  Serious: Yes (Hospitalization)
  Sender: FDA-Public Use
  Company Number: A0873492A

PATIENT
  Sex: Male

DRUGS (1)
  1. VOTRIENT [Suspect]
     Dosage: 800MGD PER DAY
     Route: 048
     Dates: start: 20100628, end: 20100703

REACTIONS (2)
  - ABDOMINAL PAIN UPPER [None]
  - GASTRIC ULCER PERFORATION [None]
